FAERS Safety Report 4959088-1 (Version None)
Quarter: 2006Q1

REPORT INFORMATION
  Report Type: 
  Country: None (occurrence: None)
  Receive Date: 20060331
  Receipt Date: 20060318
  Transmission Date: 20060701
  Serious: Yes (Other)
  Sender: FDA-Public Use
  Company Number: PHBS2006IN04233

PATIENT
  Age: 56 Year
  Sex: Female

DRUGS (4)
  1. ZOMETA [Suspect]
     Indication: METASTASES TO BONE
     Dosage: 4 MG ONCE IN 4 WEEKS
     Route: 065
  2. CHEMOTHERAPEUTICS,OTHER [Concomitant]
     Route: 065
  3. TIMODOL [Concomitant]
     Route: 065
  4. EVASTIN [Concomitant]
     Route: 065

REACTIONS (1)
  - OSTEONECROSIS [None]
